FAERS Safety Report 8628682 (Version 3)
Quarter: 2013Q4

REPORT INFORMATION
  Report Type: Spontaneous
  Country: JP (occurrence: JP)
  Receive Date: 20120621
  Receipt Date: 20131105
  Transmission Date: 20140711
  Serious: Yes (Death)
  Sender: FDA-Public Use
  Company Number: JP-009507513-1206USA02798

PATIENT
  Age: 76 Year
  Sex: Male

DRUGS (9)
  1. GLACTIV [Suspect]
     Dosage: 50 MG, QD
     Route: 048
     Dates: start: 20120517, end: 201205
  2. MAGMITT [Concomitant]
     Dosage: UNK
     Dates: start: 20120507, end: 20120514
  3. MAGMITT [Concomitant]
     Dosage: UNK
     Dates: start: 20120517
  4. PANTOL [Concomitant]
     Dates: start: 20120517
  5. URIEF [Concomitant]
  6. AVOLVE [Concomitant]
  7. BOFU-TSUSHO-SAN [Concomitant]
     Dates: start: 20120517
  8. SENNOSIDES [Concomitant]
     Dosage: 24 MG, UNK
     Dates: start: 20120517, end: 20120517
  9. SENNOSIDES [Concomitant]
     Dosage: UNK
     Dates: start: 20120517

REACTIONS (1)
  - Death [Fatal]
